FAERS Safety Report 4748629-5 (Version None)
Quarter: 2005Q3

REPORT INFORMATION
  Report Type: 
  Country: None (occurrence: None)
  Receive Date: 20050817
  Receipt Date: 20050527
  Transmission Date: 20060218
  Serious: Yes (Death, Hospitalization)
  Sender: FDA-Public Use
  Company Number: 21-732-2005-M0040 (2)

PATIENT
  Age: 68 Year
  Sex: Male

DRUGS (15)
  1. VANTAS [Suspect]
     Indication: PROSTATE CANCER
     Dosage: 50MG/YEAR, SUBCUTANEOUS
     Route: 058
     Dates: start: 20050126, end: 20050527
  2. CLOPIDPGREL BISULFATE (PLAVIX) [Concomitant]
  3. ASPIRIN [Concomitant]
  4. ATENOLOL [Concomitant]
  5. ENOXAPARIN SODIUM (LOVENOX) [Concomitant]
  6. FERROUS SULFATE [Concomitant]
  7. PROZAC [Concomitant]
  8. FOLIC ACID [Concomitant]
  9. MULTI-VITAMINS [Concomitant]
  10. PANTAPRAZOLE (PROTONIX) [Concomitant]
  11. PREDNISONE TAB [Concomitant]
  12. TYLENOL [Concomitant]
  13. THAIMINE [Concomitant]
  14. TAMSULOSIN HCL (FLOMAX) [Concomitant]
  15. CRYSTALLINE VIT B12 INJ [Concomitant]

REACTIONS (7)
  - ANGIOPLASTY [None]
  - BLOOD CREATINE PHOSPHOKINASE INCREASED [None]
  - C-REACTIVE PROTEIN INCREASED [None]
  - HYPOXIA [None]
  - POLYMYOSITIS [None]
  - RED BLOOD CELL SEDIMENTATION RATE INCREASED [None]
  - VITAL CAPACITY DECREASED [None]
